FAERS Safety Report 20540683 (Version 1)
Quarter: 2022Q1

REPORT INFORMATION
  Report Type: Spontaneous
  Country: US (occurrence: None)
  Receive Date: 20220302
  Receipt Date: 20220302
  Transmission Date: 20220423
  Serious: Yes (Life-Threatening, Hospitalization)
  Sender: FDA-Public Use
  Company Number: None

PATIENT
  Age: 92 Year
  Sex: Female

DRUGS (1)
  1. LISINOPRIL [Suspect]
     Active Substance: LISINOPRIL
     Dosage: OTHER QUANTITY : 1 PILL ;?FREQUENCY : DAILY;?
     Route: 048

REACTIONS (18)
  - Swelling face [None]
  - Lip swelling [None]
  - Glossitis [None]
  - Peripheral swelling [None]
  - Blister [None]
  - Rash pruritic [None]
  - Hypoaesthesia [None]
  - Muscular weakness [None]
  - Urticaria [None]
  - Visual impairment [None]
  - Vitreous floaters [None]
  - Diarrhoea [None]
  - Lung disorder [None]
  - Dyspnoea [None]
  - Gastrointestinal disorder [None]
  - Headache [None]
  - Decreased appetite [None]
  - Muscular weakness [None]

NARRATIVE: CASE EVENT DATE: 20210930
